FAERS Safety Report 11405107 (Version 15)
Quarter: 2015Q4

REPORT INFORMATION
  Report Type: Spontaneous
  Country: CA (occurrence: CA)
  Receive Date: 20150821
  Receipt Date: 20151204
  Transmission Date: 20160304
  Serious: Yes (Other)
  Sender: FDA-Public Use
  Company Number: CA-CONCORDIA PHARMACEUTICALS INC.-CO-PL-CA-2015-151

PATIENT
  Age: 64 Year
  Sex: Female

DRUGS (2)
  1. PLAQUENIL [Suspect]
     Active Substance: HYDROXYCHLOROQUINE SULFATE
     Indication: RHEUMATOID ARTHRITIS
     Route: 065
  2. XELJANZ [Concomitant]
     Active Substance: TOFACITINIB CITRATE
     Dates: start: 20150418

REACTIONS (23)
  - Oropharyngeal pain [Unknown]
  - Secretion discharge [Unknown]
  - Fungal infection [Not Recovered/Not Resolved]
  - Pollakiuria [Unknown]
  - Productive cough [Unknown]
  - Fatigue [Unknown]
  - Lung infection [Unknown]
  - Rheumatoid arthritis [Unknown]
  - Upper respiratory tract congestion [Unknown]
  - Neuralgia [Recovering/Resolving]
  - Hypertension [Unknown]
  - Bone pain [Not Recovered/Not Resolved]
  - Upper respiratory tract infection [Recovered/Resolved]
  - Headache [Unknown]
  - Dyspepsia [Unknown]
  - Constipation [Unknown]
  - Oedema peripheral [Unknown]
  - Cough [Unknown]
  - Pain [Recovering/Resolving]
  - Tongue geographic [Not Recovered/Not Resolved]
  - Burning sensation [Not Recovered/Not Resolved]
  - Renal disorder [Unknown]
  - Gait disturbance [Not Recovered/Not Resolved]

NARRATIVE: CASE EVENT DATE: 2015
